FAERS Safety Report 19273836 (Version 1)
Quarter: 2021Q2

REPORT INFORMATION
  Report Type: Spontaneous
  Country: US (occurrence: US)
  Receive Date: 20210518
  Receipt Date: 20210518
  Transmission Date: 20210717
  Serious: No
  Sender: FDA-Public Use
  Company Number: None

PATIENT
  Age: 49 Year
  Sex: Female
  Weight: 91.5 kg

DRUGS (3)
  1. PALBOCICLIB [Suspect]
     Active Substance: PALBOCICLIB
  2. LETROZOLE. [Concomitant]
     Active Substance: LETROZOLE
  3. RADIATION THERAPY [Concomitant]
     Active Substance: RADIATION THERAPY

REACTIONS (5)
  - Diarrhoea [None]
  - Transaminases increased [None]
  - Hyperbilirubinaemia [None]
  - Immune-mediated hepatitis [None]
  - Jaundice [None]

NARRATIVE: CASE EVENT DATE: 20200213
